FAERS Safety Report 23686674 (Version 1)
Quarter: 2024Q1

REPORT INFORMATION
  Report Type: Spontaneous
  Country: FR (occurrence: FR)
  Receive Date: 20240329
  Receipt Date: 20240329
  Transmission Date: 20240409
  Serious: Yes (Hospitalization, Other)
  Sender: FDA-Public Use
  Company Number: FR-MYLANLABS-2024M1028312

PATIENT
  Age: 35 Year
  Sex: Female

DRUGS (1)
  1. VERAPAMIL HYDROCHLORIDE [Suspect]
     Active Substance: VERAPAMIL HYDROCHLORIDE
     Indication: Vascular pain
     Dosage: 4 DOSAGE FORM, QD (4 CAPSULES OF 120MG PER DAY GRADUAL INCREASE)
     Route: 065
     Dates: start: 20220422, end: 20220528

REACTIONS (3)
  - Pulmonary embolism [Unknown]
  - Bradycardia [Unknown]
  - Off label use [Unknown]

NARRATIVE: CASE EVENT DATE: 20220422
